FAERS Safety Report 19593095 (Version 1)
Quarter: 2021Q3

REPORT INFORMATION
  Report Type: Spontaneous
  Country: US (occurrence: US)
  Receive Date: 20210722
  Receipt Date: 20210722
  Transmission Date: 20211014
  Serious: Yes (Disabling)
  Sender: FDA-Public Use
  Company Number: None

PATIENT
  Age: 35 Year
  Sex: Female
  Weight: 87.75 kg

DRUGS (11)
  1. PANTOPRAZOLE 40MG [Concomitant]
     Active Substance: PANTOPRAZOLE SODIUM
  2. MULTIVITAMINS [Concomitant]
     Active Substance: VITAMINS
  3. MONTELUKAST 10MG TABLETS [Suspect]
     Active Substance: MONTELUKAST\MONTELUKAST SODIUM
     Indication: HYPERSENSITIVITY
     Dosage: ?          QUANTITY:1 TABLET(S);?
     Route: 048
     Dates: start: 20210705, end: 20210721
  4. ADDERALL XR [Concomitant]
     Active Substance: AMPHETAMINE ASPARTATE\AMPHETAMINE SULFATE\DEXTROAMPHETAMINE SACCHARATE\DEXTROAMPHETAMINE SULFATE
  5. NIACIN 500MG [Concomitant]
  6. FENEGREEK VITAMIN [Concomitant]
  7. VENLAFAXINE ER [Concomitant]
     Active Substance: VENLAFAXINE HYDROCHLORIDE
  8. FLUOXETINE [Concomitant]
     Active Substance: FLUOXETINE HYDROCHLORIDE
  9. ATORVASTATIN 20MG [Concomitant]
     Active Substance: ATORVASTATIN
  10. FLUTICASONE NASAL SPRAY [Concomitant]
     Active Substance: FLUTICASONE
  11. VITAMIN D3 [Concomitant]
     Active Substance: CHOLECALCIFEROL

REACTIONS (4)
  - Disturbance in attention [None]
  - Depression [None]
  - Feeling of despair [None]
  - Asthenia [None]

NARRATIVE: CASE EVENT DATE: 20210712
